FAERS Safety Report 8262396-2 (Version None)
Quarter: 2012Q2

REPORT INFORMATION
  Report Type: 
  Country: None (occurrence: None)
  Receive Date: 20120405
  Receipt Date: 20120329
  Transmission Date: 20120825
  Serious: Yes (Other)
  Sender: FDA-Public Use
  Company Number: US-JNJFOC-20120314619

PATIENT
  Sex: Male
  Weight: 69.4 kg

DRUGS (9)
  1. SIMPONI [Suspect]
     Indication: RHEUMATOID ARTHRITIS
     Route: 058
     Dates: start: 20101004, end: 20101004
  2. TRAZODONE HCL [Concomitant]
  3. MEDROL [Concomitant]
  4. CELEXA [Concomitant]
     Indication: RHEUMATOID ARTHRITIS
  5. ALCOHOL [Suspect]
     Indication: PRODUCT USED FOR UNKNOWN INDICATION
     Route: 048
  6. PROTONIX [Concomitant]
  7. SIMPONI [Suspect]
     Route: 058
     Dates: start: 20090520, end: 20100520
  8. MEDROL [Concomitant]
  9. LORTAB [Concomitant]
     Indication: ARTHRALGIA
     Dosage: 7.5/500

REACTIONS (3)
  - HEPATIC ENZYME INCREASED [None]
  - ALANINE AMINOTRANSFERASE INCREASED [None]
  - ASPARTATE AMINOTRANSFERASE INCREASED [None]
